FAERS Safety Report 14378307 (Version 1)
Quarter: 2018Q1

REPORT INFORMATION
  Report Type: Spontaneous
  Country: US (occurrence: US)
  Receive Date: 20180111
  Receipt Date: 20180111
  Transmission Date: 20180509
  Serious: No
  Sender: FDA-Public Use
  Company Number: US-BIOGEN-2018BI00508403

PATIENT
  Sex: Female

DRUGS (1)
  1. AVONEX [Suspect]
     Active Substance: INTERFERON BETA-1A
     Indication: MULTIPLE SCLEROSIS
     Route: 030

REACTIONS (7)
  - Malaise [Recovered/Resolved]
  - Trigeminal neuralgia [Unknown]
  - Pyrexia [Recovered/Resolved]
  - Pain [Recovered/Resolved]
  - Multiple sclerosis relapse [Not Recovered/Not Resolved]
  - Injection site erythema [Recovered/Resolved]
  - Injection site warmth [Recovered/Resolved]
